FAERS Safety Report 8217584-8 (Version None)
Quarter: 2012Q1

REPORT INFORMATION
  Report Type: 
  Country: None (occurrence: None)
  Receive Date: 20120319
  Receipt Date: 20120319
  Transmission Date: 20120608
  Serious: No
  Sender: FDA-Public Use
  Company Number: None

PATIENT
  Age: 53 Year
  Sex: Female
  Weight: 77.11 kg

DRUGS (2)
  1. TAMOXIFEN CITRATE [Suspect]
     Indication: BREAST CANCER
     Dosage: 1 TABLET
     Route: 048
     Dates: start: 20080210, end: 20080213
  2. TAMOXIFEN CITRATE [Suspect]
     Indication: PROPHYLAXIS
     Dosage: 1 TABLET
     Route: 048
     Dates: start: 20080210, end: 20080213

REACTIONS (6)
  - PAIN [None]
  - CRYING [None]
  - FRUSTRATION [None]
  - WEIGHT INCREASED [None]
  - BLOOD PRESSURE ABNORMAL [None]
  - PAIN IN EXTREMITY [None]
